FAERS Safety Report 6506641-X (Version None)
Quarter: 2009Q4

REPORT INFORMATION
  Report Type: 
  Country: None (occurrence: None)
  Receive Date: 20091221
  Receipt Date: 20091215
  Transmission Date: 20100525
  Serious: Yes (Life-Threatening)
  Sender: FDA-Public Use
  Company Number: JP-ROCHE-669914

PATIENT
  Age: 66 Year
  Sex: Female

DRUGS (4)
  1. KYTRIL [Suspect]
     Indication: PROPHYLAXIS OF NAUSEA AND VOMITING
     Route: 041
     Dates: start: 20091020, end: 20091020
  2. KYTRIL [Suspect]
     Route: 041
     Dates: start: 20091110, end: 20091110
  3. GEMZAR [Concomitant]
     Route: 041
  4. NARCOTIC NOS [Concomitant]
     Dosage: DRUG NAME: SYNTHETIC NARCOTICS.

REACTIONS (2)
  - OEDEMA [None]
  - SOMNOLENCE [None]
